FAERS Safety Report 11394690 (Version 1)
Quarter: 2015Q3

REPORT INFORMATION
  Report Type: Spontaneous
  Country: US (occurrence: US)
  Receive Date: 20150819
  Receipt Date: 20150819
  Transmission Date: 20151125
  Serious: Yes (Other)
  Sender: FDA-Public Use
  Company Number: US-HOSPIRA-2565027

PATIENT

DRUGS (2)
  1. ORPHENADRINE [Suspect]
     Active Substance: ORPHENADRINE
     Indication: BACK PAIN
     Dosage: UNKNOWN, INJECTION
     Route: 050
     Dates: start: 201409, end: 201409
  2. KETOROLAC [Suspect]
     Active Substance: KETOROLAC\KETOROLAC TROMETHAMINE
     Indication: BACK PAIN
     Dosage: UNKNOWN, UNKNOWN, INJECTION
     Route: 050
     Dates: start: 201409, end: 201409

REACTIONS (1)
  - Loss of consciousness [Recovered/Resolved]

NARRATIVE: CASE EVENT DATE: 201409
